FAERS Safety Report 21167407 (Version 1)
Quarter: 2022Q3

REPORT INFORMATION
  Report Type: Spontaneous
  Country: US (occurrence: None)
  Receive Date: 20220803
  Receipt Date: 20220803
  Transmission Date: 20221026
  Serious: No
  Sender: FDA-Public Use
  Company Number: None

PATIENT
  Age: 66 Year
  Sex: Female
  Weight: 112.95 kg

DRUGS (1)
  1. METFORMIN HYDROCHLORIDE [Suspect]
     Active Substance: METFORMIN HYDROCHLORIDE
     Indication: Insulin resistance
     Dosage: OTHER QUANTITY : 276 TABLET(S);?OTHER FREQUENCY : GRADUATED INCREASI;?
     Route: 048
     Dates: start: 20220803

REACTIONS (1)
  - Product label issue [None]

NARRATIVE: CASE EVENT DATE: 20220803
